FAERS Safety Report 10998241 (Version 1)
Quarter: 2015Q2

REPORT INFORMATION
  Report Type: Spontaneous
  Country: US (occurrence: US)
  Receive Date: 20150408
  Receipt Date: 20150408
  Transmission Date: 20150821
  Serious: No
  Sender: FDA-Public Use
  Company Number: US-SA-2014SA040767

PATIENT
  Age: 81 Year
  Sex: Male

DRUGS (2)
  1. COMBIGAN [Concomitant]
     Active Substance: BRIMONIDINE TARTRATE\TIMOLOL MALEATE
  2. ALLEGRA [Suspect]
     Active Substance: FEXOFENADINE HYDROCHLORIDE
     Indication: HYPERSENSITIVITY
     Dosage: PRODUCT START DATE- 2 WEELS AGO
     Route: 048
     Dates: end: 20140328

REACTIONS (3)
  - Dry eye [Unknown]
  - Nasal dryness [Unknown]
  - Wrong technique in drug usage process [Unknown]
